FAERS Safety Report 10097134 (Version 2)
Quarter: 2016Q1

REPORT INFORMATION
  Report Type: Spontaneous
  Country: DK (occurrence: CA)
  Receive Date: 20140422
  Receipt Date: 20160229
  Transmission Date: 20160525
  Serious: Yes (Death)
  Sender: FDA-Public Use
  Company Number: CA-FRI-1000066735

PATIENT
  Age: 62 Year
  Sex: Male
  Weight: 82 kg

DRUGS (1)
  1. ESCITALOPRAM [Suspect]
     Active Substance: ESCITALOPRAM OXALATE
     Indication: TINNITUS
     Dosage: 1 DF
     Route: 048
     Dates: start: 20131010, end: 20131020

REACTIONS (5)
  - Product use issue [Fatal]
  - Completed suicide [Fatal]
  - Anxiety [Fatal]
  - Tinnitus [Fatal]
  - Agitation [Fatal]

NARRATIVE: CASE EVENT DATE: 201310
